FAERS Safety Report 9370044 (Version 1)
Quarter: 2013Q2

REPORT INFORMATION
  Report Type: Spontaneous
  Country: AU (occurrence: AU)
  Receive Date: 20130626
  Receipt Date: 20130626
  Transmission Date: 20140414
  Serious: Yes (Hospitalization)
  Sender: FDA-Public Use
  Company Number: AU-PFIZER INC-2013186485

PATIENT
  Age: 4 Year
  Sex: Male

DRUGS (2)
  1. RAMIPRIL [Suspect]
     Indication: NEPHRECTOMY
     Dosage: 1.3 MILLIGRAM(S), DAILY
     Route: 065
     Dates: start: 20121215
  2. CAPTOPRIL [Concomitant]
     Dosage: UNK
     Dates: end: 201212

REACTIONS (3)
  - Urticaria [Not Recovered/Not Resolved]
  - Face oedema [Not Recovered/Not Resolved]
  - Arthralgia [Not Recovered/Not Resolved]
